FAERS Safety Report 22225545 (Version 1)
Quarter: 2023Q2

REPORT INFORMATION
  Report Type: Report from Study
  Country: IR (occurrence: IR)
  Receive Date: 20230418
  Receipt Date: 20230418
  Transmission Date: 20230721
  Serious: Yes (Death, Other)
  Sender: FDA-Public Use
  Company Number: IR-GILEAD-2023-0624080

PATIENT
  Age: 33 Year
  Sex: Female

DRUGS (8)
  1. REMDESIVIR [Suspect]
     Active Substance: REMDESIVIR
     Indication: COVID-19
     Route: 065
  2. ADALAT [Concomitant]
     Active Substance: NIFEDIPINE
  3. DIPHENHYDRAMINE [Concomitant]
     Active Substance: DIPHENHYDRAMINE
  4. CEFTRIAXONE [Concomitant]
     Active Substance: CEFTRIAXONE
  5. AZITHROMYCIN [Concomitant]
     Active Substance: AZITHROMYCIN
  6. MEROPENEM [Concomitant]
     Active Substance: MEROPENEM
  7. HEPARIN [Concomitant]
     Active Substance: HEPARIN SODIUM
  8. DEXAMETHASONE [Concomitant]
     Active Substance: DEXAMETHASONE

REACTIONS (3)
  - Foetal death [Fatal]
  - Premature delivery [Recovered/Resolved]
  - Maternal exposure during pregnancy [Recovered/Resolved]
